FAERS Safety Report 21254359 (Version 1)
Quarter: 2022Q3

REPORT INFORMATION
  Report Type: Spontaneous
  Country: US (occurrence: US)
  Receive Date: 20220825
  Receipt Date: 20220825
  Transmission Date: 20221026
  Serious: No
  Sender: FDA-Public Use
  Company Number: US-ORGANON-O2208USA001308

PATIENT
  Age: 37 Year
  Sex: Female

DRUGS (7)
  1. FOLLISTIM AQ [Suspect]
     Active Substance: FOLLITROPIN
     Dosage: 900 UNT/1.08 ML, INJECT UP TO 450 UNITS UNDER THE SKIN (SUBCUTANEOUS INJECTION) EVERY DAY
     Route: 058
     Dates: start: 20220802
  2. FOLLISTIM AQ [Suspect]
     Active Substance: FOLLITROPIN
  3. PREGNYL [Concomitant]
     Active Substance: CHORIOGONADOTROPIN ALFA
     Dosage: 10000 UNIT MDV 60
  4. WATER FOR INJECTION [Concomitant]
     Active Substance: WATER
  5. GANIRELIX ACETATE [Concomitant]
     Active Substance: GANIRELIX ACETATE
  6. MENOPUR [Concomitant]
     Active Substance: FOLLITROPIN\LUTEINIZING HORMONE
     Dosage: 75 IU SDV W/Q-CAP
  7. PROGESTERONE [Concomitant]
     Active Substance: PROGESTERONE
     Dosage: 50 MG/ML MDV 10 ML

REACTIONS (2)
  - Fatigue [Unknown]
  - Headache [Unknown]

NARRATIVE: CASE EVENT DATE: 20220810
